FAERS Safety Report 20837603 (Version 3)
Quarter: 2022Q2

REPORT INFORMATION
  Report Type: Report from Study
  Country: GB (occurrence: None)
  Receive Date: 20220517
  Receipt Date: 20220526
  Transmission Date: 20220720
  Serious: Yes (Hospitalization)
  Sender: FDA-Public Use
  Company Number: GB-ROCHE-3094222

PATIENT
  Age: 72 Year
  Sex: Male
  Weight: 81.5 kg

DRUGS (14)
  1. TIRAGOLUMAB [Suspect]
     Active Substance: TIRAGOLUMAB
     Indication: Squamous cell carcinoma of head and neck
     Dosage: MOST RECENT DOSE OF TIRAGOLUMAB PRIOR TO SAE/AE: 25-APR-2022
     Route: 042
     Dates: start: 20220404
  2. ATEZOLIZUMAB [Suspect]
     Active Substance: ATEZOLIZUMAB
     Indication: Squamous cell carcinoma of head and neck
     Dosage: MOST RECENT DOSE OF ATEZOLIZUMAB PRIOR TO SAE/AE: 25-APR-2022
     Route: 041
     Dates: start: 20220404
  3. ATORVASTATIN [Concomitant]
     Active Substance: ATORVASTATIN
     Indication: Prophylaxis
     Route: 048
     Dates: start: 201807
  4. CLOPIDOGREL [Concomitant]
     Active Substance: CLOPIDOGREL BISULFATE
     Indication: Prophylaxis
     Route: 048
     Dates: start: 201807
  5. LANSOPRAZOLE [Concomitant]
     Active Substance: LANSOPRAZOLE
     Indication: Prophylaxis
     Route: 048
     Dates: start: 201807
  6. COCODAMOL [Concomitant]
     Active Substance: ACETAMINOPHEN\CODEINE PHOSPHATE
     Indication: Tumour pain
     Route: 048
     Dates: start: 201807
  7. GABAPENTIN [Concomitant]
     Active Substance: GABAPENTIN
     Indication: Tumour pain
     Route: 048
     Dates: start: 20220318
  8. TRANEXAMIC ACID [Concomitant]
     Active Substance: TRANEXAMIC ACID
     Indication: Tumour haemorrhage
     Route: 048
     Dates: start: 20220316
  9. POLYETHYLENE GLYCOL 3350\POTASSIUM CHLORIDE\SODIUM BICARBONATE\SODIUM [Concomitant]
     Active Substance: POLYETHYLENE GLYCOL 3350\POTASSIUM CHLORIDE\SODIUM BICARBONATE\SODIUM CHLORIDE
     Indication: Constipation
     Route: 048
     Dates: start: 20220318
  10. LACTULOSE [Concomitant]
     Active Substance: LACTULOSE
     Indication: Constipation
     Route: 048
     Dates: start: 20220318
  11. AMOXICILLIN\CLAVULANATE POTASSIUM [Concomitant]
     Active Substance: AMOXICILLIN\CLAVULANATE POTASSIUM
     Indication: Tumour pain
     Route: 048
     Dates: start: 20220404
  12. BUPRENORPHINE [Concomitant]
     Active Substance: BUPRENORPHINE
     Indication: Tumour pain
     Route: 061
     Dates: start: 20220401
  13. CIPROFLOXACIN [Concomitant]
     Active Substance: CIPROFLOXACIN
     Indication: Tumour pain
     Route: 048
     Dates: start: 20220401
  14. SILICOLGEL [Concomitant]
     Indication: Prophylaxis
     Route: 048
     Dates: start: 20220418, end: 20220421

REACTIONS (1)
  - Pneumonia aspiration [Recovered/Resolved]

NARRATIVE: CASE EVENT DATE: 20220508
